FAERS Safety Report 5590292-8 (Version None)
Quarter: 2008Q1

REPORT INFORMATION
  Report Type: 
  Country: None (occurrence: None)
  Receive Date: 20080114
  Receipt Date: 20080107
  Transmission Date: 20080703
  Serious: Yes (Other)
  Sender: FDA-Public Use
  Company Number: US-RANBAXY-2008US-12440

PATIENT

DRUGS (1)
  1. ISOTRETINOIN [Suspect]
     Indication: OFF LABEL USE

REACTIONS (1)
  - DISEASE PROGRESSION [None]
